FAERS Safety Report 5485180-1 (Version None)
Quarter: 2007Q4

REPORT INFORMATION
  Report Type: 
  Country: None (occurrence: None)
  Receive Date: 20071010
  Receipt Date: 20071010
  Transmission Date: 20080405
  Serious: Yes (Other)
  Sender: FDA-Public Use
  Company Number: None

PATIENT
  Age: 39 Year
  Sex: Male
  Weight: 127.0072 kg

DRUGS (4)
  1. ATENOLOL [Suspect]
     Indication: ATRIAL FIBRILLATION
     Dosage: 100 MG ONCE DAILY PO
     Route: 048
     Dates: start: 20050920, end: 20070901
  2. LEXAPRO [Concomitant]
  3. WELLBUTRIN XL [Concomitant]
  4. CYMBALTA [Concomitant]

REACTIONS (8)
  - DECREASED INTEREST [None]
  - DEPRESSED MOOD [None]
  - DEPRESSION [None]
  - DISTURBANCE IN ATTENTION [None]
  - FATIGUE [None]
  - MENTAL STATUS CHANGES [None]
  - SUICIDAL IDEATION [None]
  - WEIGHT INCREASED [None]
